FAERS Safety Report 5589573-3 (Version None)
Quarter: 2008Q1

REPORT INFORMATION
  Report Type: 
  Country: None (occurrence: None)
  Receive Date: 20080114
  Receipt Date: 20080108
  Transmission Date: 20080703
  Serious: Yes (Hospitalization)
  Sender: FDA-Public Use
  Company Number: US-ALLERGAN-0714311US

PATIENT
  Sex: Female

DRUGS (1)
  1. BOTOX [Suspect]
     Indication: DRUG USE FOR UNKNOWN INDICATION
     Dosage: UNK, SINGLE
     Dates: start: 20070925, end: 20070925

REACTIONS (10)
  - DIZZINESS [None]
  - FATIGUE [None]
  - FLUSHING [None]
  - HAEMORRHAGE [None]
  - HYPOAESTHESIA [None]
  - INFLUENZA LIKE ILLNESS [None]
  - MONOPLEGIA [None]
  - MOVEMENT DISORDER [None]
  - PARALYSIS [None]
  - TACHYCARDIA [None]
